FAERS Safety Report 19643750 (Version 1)
Quarter: 2021Q3

REPORT INFORMATION
  Report Type: Spontaneous
  Country: AU (occurrence: AU)
  Receive Date: 20210730
  Receipt Date: 20210730
  Transmission Date: 20211014
  Serious: Yes (Other)
  Sender: FDA-Public Use
  Company Number: NVSC2020AU202214

PATIENT
  Age: 8 Year
  Sex: Female

DRUGS (1)
  1. KYMRIAH [Suspect]
     Active Substance: TISAGENLECLEUCEL
     Indication: ACUTE LYMPHOCYTIC LEUKAEMIA RECURRENT
     Dosage: 2 OT, QD 2 (4.9 X 10E6 CAR?POSITIVE VIABLE T?CELLS/KG)
     Route: 042
     Dates: start: 20191015

REACTIONS (7)
  - B-lymphocyte count abnormal [Unknown]
  - Product storage error [Unknown]
  - B-cell aplasia [Unknown]
  - Bone marrow myelogram abnormal [Unknown]
  - Out of specification test results [Unknown]
  - Cytokine release syndrome [Unknown]
  - Loss of CAR T-cell persistence [Unknown]

NARRATIVE: CASE EVENT DATE: 20191015
